FAERS Safety Report 10256560 (Version 1)
Quarter: 2014Q2

REPORT INFORMATION
  Report Type: Spontaneous
  Country: US (occurrence: US)
  Receive Date: 20140624
  Receipt Date: 20140624
  Transmission Date: 20141212
  Serious: No
  Sender: FDA-Public Use
  Company Number: US-ZOGENIX, INC.-2011ZX000384

PATIENT
  Age: 46 Year
  Sex: Female
  Weight: 68.1 kg

DRUGS (6)
  1. SUMAVEL DOSEPRO [Suspect]
     Indication: MIGRAINE
  2. KEPPRA [Concomitant]
     Indication: PRODUCT USED FOR UNKNOWN INDICATION
     Route: 048
  3. VYVANSE [Concomitant]
     Indication: PRODUCT USED FOR UNKNOWN INDICATION
     Route: 048
  4. ACYCLOVIR                          /00587301/ [Concomitant]
     Indication: ANTIVIRAL TREATMENT
     Route: 048
  5. NAPROSYN                           /00256201/ [Concomitant]
     Indication: PAIN
  6. TIZANIDINE [Concomitant]
     Indication: PRODUCT USED FOR UNKNOWN INDICATION
     Route: 048

REACTIONS (2)
  - Drug effect incomplete [Recovering/Resolving]
  - Head discomfort [Recovered/Resolved]
